FAERS Safety Report 25724718 (Version 1)
Quarter: 2025Q3

REPORT INFORMATION
  Report Type: Spontaneous
  Country: CA (occurrence: CA)
  Receive Date: 20250826
  Receipt Date: 20250826
  Transmission Date: 20251020
  Serious: Yes (Hospitalization, Other)
  Sender: CELLTRION
  Company Number: CA-CELLTRION INC.-2025CA029017

PATIENT

DRUGS (17)
  1. INFLIXIMAB [Suspect]
     Active Substance: INFLIXIMAB
     Indication: Colitis ulcerative
     Route: 042
  2. INFLIXIMAB [Suspect]
     Active Substance: INFLIXIMAB
     Route: 042
  3. INFLIXIMAB [Suspect]
     Active Substance: INFLIXIMAB
     Route: 042
  4. INFLIXIMAB [Suspect]
     Active Substance: INFLIXIMAB
     Route: 042
  5. INFLIXIMAB [Suspect]
     Active Substance: INFLIXIMAB
     Route: 042
  6. INFLIXIMAB [Suspect]
     Active Substance: INFLIXIMAB
     Route: 042
  7. ANASTROZOLE [Concomitant]
     Active Substance: ANASTROZOLE
  8. CHOLESTYRAMINE [Concomitant]
     Active Substance: CHOLESTYRAMINE
  9. FAMOTIDINE [Concomitant]
     Active Substance: FAMOTIDINE
  10. LOMOTIL [Concomitant]
     Active Substance: ATROPINE SULFATE\DIPHENOXYLATE HYDROCHLORIDE
     Indication: Diarrhoea
  11. LOPERAMIDE [Concomitant]
     Active Substance: LOPERAMIDE
  12. MAGNESIUM [Concomitant]
     Active Substance: MAGNESIUM
  13. MERCAPTOPURINE [Concomitant]
     Active Substance: MERCAPTOPURINE
  14. MIDAMOR [Concomitant]
     Active Substance: AMILORIDE HYDROCHLORIDE
  15. CHOLESTYRAMINE [Concomitant]
     Active Substance: CHOLESTYRAMINE
     Indication: Diarrhoea
  16. VITAMIN B12 [Concomitant]
     Active Substance: CYANOCOBALAMIN
  17. VITAMIN D3 [Concomitant]
     Active Substance: CHOLECALCIFEROL

REACTIONS (13)
  - Acute kidney injury [Recovered/Resolved]
  - Blood magnesium decreased [Recovered/Resolved]
  - Coccydynia [Recovered/Resolved]
  - Condition aggravated [Recovered/Resolved]
  - Hypokalaemia [Recovered/Resolved]
  - Hypoglycaemia [Recovered/Resolved]
  - Vomiting [Recovered/Resolved]
  - Arthralgia [Recovered/Resolved]
  - Dyspepsia [Recovered/Resolved]
  - Pain [Recovered/Resolved]
  - Drug ineffective [Recovered/Resolved]
  - Off label use [Recovered/Resolved]
  - Therapeutic response shortened [Recovered/Resolved]
